FAERS Safety Report 7328849-6 (Version None)
Quarter: 2011Q1

REPORT INFORMATION
  Report Type: 
  Country: None (occurrence: None)
  Receive Date: 20110303
  Receipt Date: 20110223
  Transmission Date: 20110831
  Serious: Yes (Hospitalization)
  Sender: FDA-Public Use
  Company Number: CO-ROCHE-761717

PATIENT
  Sex: Female

DRUGS (3)
  1. TOCILIZUMAB [Suspect]
     Indication: RHEUMATOID ARTHRITIS
     Route: 042
     Dates: start: 20110114
  2. TRAMADOL HCL [Concomitant]
     Indication: PAIN
     Route: 048
  3. DICLOFENAC [Concomitant]
     Indication: PAIN
     Route: 048

REACTIONS (1)
  - ARTHRALGIA [None]
